FAERS Safety Report 4353896-6 (Version None)
Quarter: 2004Q2

REPORT INFORMATION
  Report Type: 
  Country: None (occurrence: None)
  Receive Date: 20040506
  Receipt Date: 20040206
  Transmission Date: 20050107
  Serious: No
  Sender: FDA-Public Use
  Company Number: US-GLAXOSMITHKLINE-A0497084A

PATIENT
  Age: 76 Year
  Sex: Female

DRUGS (8)
  1. AMOXIL [Suspect]
     Indication: ILL-DEFINED DISORDER
     Dosage: 500MG VARIABLE DOSE
     Route: 048
     Dates: start: 20040121, end: 20040128
  2. COUMADIN [Concomitant]
  3. LEVOTHYROXINE [Concomitant]
     Route: 065
  4. FUROSAMIDE [Concomitant]
  5. POTASSIUM [Concomitant]
  6. ENALAPRIL MALEATE [Concomitant]
  7. DIGITEK [Concomitant]
  8. LOCAL ANESTHETIC [Concomitant]

REACTIONS (2)
  - PRURITUS [None]
  - URTICARIA [None]
